FAERS Safety Report 9893116 (Version 2)
Quarter: 2014Q1

REPORT INFORMATION
  Report Type: Spontaneous
  Country: US (occurrence: US)
  Receive Date: 20140213
  Receipt Date: 20140220
  Transmission Date: 20141002
  Serious: Yes (Other)
  Sender: FDA-Public Use
  Company Number: US-BEH-2014040676

PATIENT
  Age: 39 Year
  Sex: Male

DRUGS (3)
  1. IVIG [Suspect]
     Indication: IMMUNE THROMBOCYTOPENIC PURPURA
     Route: 042
  2. STEROIDS [Concomitant]
     Indication: IMMUNE THROMBOCYTOPENIC PURPURA
  3. PLATELET TRANSFUSIONS [Concomitant]
     Indication: IMMUNE THROMBOCYTOPENIC PURPURA

REACTIONS (1)
  - Drug ineffective [Recovering/Resolving]
